FAERS Safety Report 10462629 (Version 5)
Quarter: 2015Q1

REPORT INFORMATION
  Report Type: Report from Study
  Country: AU (occurrence: AU)
  Receive Date: 20140918
  Receipt Date: 20150222
  Transmission Date: 20150720
  Serious: Yes (Other)
  Sender: FDA-Public Use
  Company Number: PHHY2014AU115743

PATIENT
  Age: 27 Year
  Sex: Male

DRUGS (5)
  1. CLOZARIL [Suspect]
     Active Substance: CLOZAPINE
     Dosage: UNK
     Route: 048
  2. PALIPERIDONE [Concomitant]
     Active Substance: PALIPERIDONE
     Indication: PRODUCT USED FOR UNKNOWN INDICATION
     Dosage: 150 MG, 4 TIMES WEEKLY
     Route: 065
  3. CLOZARIL [Suspect]
     Active Substance: CLOZAPINE
     Indication: SCHIZOPHRENIA
     Dosage: 400 MG, QD
     Route: 048
     Dates: start: 20140404
  4. CLOZARIL [Suspect]
     Active Substance: CLOZAPINE
     Dosage: 400 MG, AT NIGHT
     Route: 048
  5. CLOZARIL [Suspect]
     Active Substance: CLOZAPINE
     Dosage: 500 MG (300 MG MANE AND 200 MG NOCTE)
     Route: 048

REACTIONS (10)
  - Antipsychotic drug level above therapeutic [Recovering/Resolving]
  - Tachycardia [Unknown]
  - Blood triglycerides increased [Recovering/Resolving]
  - Liver function test abnormal [Unknown]
  - Myocardial ischaemia [Recovered/Resolved]
  - Blood glucose increased [Recovering/Resolving]
  - Systolic dysfunction [Unknown]
  - Atrial septal defect [Unknown]
  - Acute coronary syndrome [Unknown]
  - Chest pain [Unknown]

NARRATIVE: CASE EVENT DATE: 20140814
